FAERS Safety Report 8647797 (Version 2)
Quarter: 2012Q4

REPORT INFORMATION
  Report Type: 
  Country: US (occurrence: US)
  Receive Date: 20120703
  Receipt Date: 20121003
  Transmission Date: 20130627
  Serious: Yes (Other)
  Sender: FDA-Public Use
  Company Number: US-ROCHE-791163

PATIENT
  Age: 16 Year
  Sex: Female
  Weight: 61.29 kg

DRUGS (3)
  1. ACCUTANE [Suspect]
     Indication: ACNE
     Route: 048
  2. ACCUTANE [Suspect]
     Route: 048
     Dates: start: 20030212, end: 200307
  3. ORTHO TRI CYCLEN [Concomitant]

REACTIONS (13)
  - Inflammatory bowel disease [Unknown]
  - Crohn^s disease [Unknown]
  - Depression [Unknown]
  - Irritable bowel syndrome [Unknown]
  - Stress [Unknown]
  - Dry skin [Unknown]
  - Lip dry [Unknown]
  - Nasal dryness [Unknown]
  - Dry eye [Unknown]
  - Cheilitis [Unknown]
  - Pityriasis alba [Unknown]
  - Headache [Unknown]
  - Epistaxis [Recovered/Resolved]
